FAERS Safety Report 26022397 (Version 1)
Quarter: 2025Q4

REPORT INFORMATION
  Report Type: Report from Study
  Country: US (occurrence: US)
  Receive Date: 20251110
  Receipt Date: 20251110
  Transmission Date: 20260118
  Serious: Yes (Other)
  Sender: TAKEDA
  Company Number: US-TAKEDA-2024TUS118429

PATIENT
  Age: 45 Year
  Sex: Female

DRUGS (2)
  1. IXAZOMIB [Suspect]
     Active Substance: IXAZOMIB
     Indication: Plasma cell myeloma
     Dosage: 3 MILLIGRAM
  2. REVLIMID [Concomitant]
     Active Substance: LENALIDOMIDE
     Dosage: UNK

REACTIONS (6)
  - Fungal infection [Recovering/Resolving]
  - Pain [Unknown]
  - Dysphonia [Unknown]
  - Renal disorder [Unknown]
  - Bone pain [Unknown]
  - Vomiting [Unknown]
